FAERS Safety Report 22370298 (Version 1)
Quarter: 2023Q2

REPORT INFORMATION
  Report Type: Spontaneous
  Country: GB (occurrence: GB)
  Receive Date: 20230526
  Receipt Date: 20230526
  Transmission Date: 20230722
  Serious: Yes (Other)
  Sender: FDA-Public Use
  Company Number: GB-MHRA-TPP18997356C9095532YC1683620573005

PATIENT
  Age: 45 Year
  Sex: Male
  Weight: 71 kg

DRUGS (6)
  1. QUETIAPINE [Suspect]
     Active Substance: QUETIAPINE
     Indication: Product used for unknown indication
     Dosage: 200 MILLIGRAM
     Route: 048
     Dates: start: 20230503
  2. EPILIM [Concomitant]
     Active Substance: VALPROATE SODIUM
     Indication: Product used for unknown indication
     Dosage: 5 DOSAGE FORM, TWO TIMES A DAY(MORNING AND EVENING)
     Route: 048
     Dates: start: 20220422
  3. KETOCONAZOLE [Concomitant]
     Active Substance: KETOCONAZOLE
     Indication: Product used for unknown indication
     Dosage: HAIR + SCALP UP TO TWICE A WEEK(AS NECESSARY)
     Route: 065
     Dates: start: 20211130
  4. LACOSAMIDE [Concomitant]
     Active Substance: LACOSAMIDE
     Indication: Product used for unknown indication
     Dosage: 5 MILLILITER, TWO TIMES A DAY
     Route: 065
     Dates: start: 20220422
  5. MIDAZOLAM [Concomitant]
     Active Substance: MIDAZOLAM
     Indication: Seizure
     Dosage: FULL IN MOUTH (IF CONVULSION LASTS ...
     Route: 048
     Dates: start: 20220920
  6. TRAZODONE [Concomitant]
     Active Substance: TRAZODONE HYDROCHLORIDE
     Indication: Product used for unknown indication
     Dosage: 2 DOSAGE FORM, ONCE A DAY(NIGHT)
     Route: 065
     Dates: start: 20201215

REACTIONS (1)
  - Epilepsy [Recovered/Resolved]
